FAERS Safety Report 21175599 (Version 1)
Quarter: 2022Q3

REPORT INFORMATION
  Report Type: Spontaneous
  Country: US (occurrence: US)
  Receive Date: 20220805
  Receipt Date: 20220805
  Transmission Date: 20221026
  Serious: Yes (Other)
  Sender: FDA-Public Use
  Company Number: US-SA-SAC20220803001201

PATIENT
  Age: 49 Year
  Sex: Female

DRUGS (1)
  1. ZANTAC [Suspect]
     Active Substance: RANITIDINE HYDROCHLORIDE
     Indication: Dyspepsia
     Dosage: 75 MG, FREQ- OCCASIONAL
     Dates: start: 201001, end: 201801

REACTIONS (2)
  - Breast cancer stage II [Unknown]
  - Cervix carcinoma stage III [Unknown]

NARRATIVE: CASE EVENT DATE: 20110801
